FAERS Safety Report 13696005 (Version 1)
Quarter: 2017Q2

REPORT INFORMATION
  Report Type: Report from Study
  Country: BR (occurrence: BR)
  Receive Date: 20170628
  Receipt Date: 20170628
  Transmission Date: 20170830
  Serious: Yes (Other)
  Sender: FDA-Public Use
  Company Number: BR-BIOGEN-2017BI00423200

PATIENT
  Sex: Female

DRUGS (1)
  1. TECFIDERA [Suspect]
     Active Substance: DIMETHYL FUMARATE
     Indication: MULTIPLE SCLEROSIS
     Dosage: MAINTENANCE DOSE
     Route: 048
     Dates: start: 20170210, end: 201705

REACTIONS (5)
  - Hemiplegia [Unknown]
  - Tremor [Unknown]
  - Drug effect incomplete [Unknown]
  - Gastrooesophageal reflux disease [Unknown]
  - Malaise [Unknown]
